FAERS Safety Report 7590872-4 (Version None)
Quarter: 2011Q3

REPORT INFORMATION
  Report Type: 
  Country: None (occurrence: None)
  Receive Date: 20110705
  Receipt Date: 20110623
  Transmission Date: 20111222
  Serious: Yes (Hospitalization, Other)
  Sender: FDA-Public Use
  Company Number: PHHY2011US41661

PATIENT
  Sex: Male

DRUGS (1)
  1. EXJADE [Suspect]
     Indication: NEOPLASM
     Dosage: 2125 MG, QD
     Route: 048

REACTIONS (3)
  - PANCYTOPENIA [None]
  - BACTERIAL INFECTION [None]
  - TONGUE BLISTERING [None]
